FAERS Safety Report 9591921 (Version 2)
Quarter: 2013Q4

REPORT INFORMATION
  Report Type: Spontaneous
  Country: US (occurrence: US)
  Receive Date: 20131004
  Receipt Date: 20131004
  Transmission Date: 20140711
  Serious: No
  Sender: FDA-Public Use
  Company Number: US-AMGEN-USASP2012074777

PATIENT
  Age: 48 Year
  Sex: Female

DRUGS (5)
  1. ENBREL [Suspect]
     Indication: RHEUMATOID ARTHRITIS
     Dosage: 50 MG, QWK
     Dates: start: 2005
  2. PLAQUENIL                          /00072602/ [Concomitant]
     Dosage: UNK
  3. METHOTREXATE [Concomitant]
     Dosage: UNK
     Route: 048
     Dates: start: 2005
  4. REMICADE [Concomitant]
     Dosage: UNK
  5. HUMIRA [Concomitant]
     Dosage: UNK

REACTIONS (13)
  - Arthralgia [Not Recovered/Not Resolved]
  - Joint swelling [Not Recovered/Not Resolved]
  - Influenza like illness [Recovered/Resolved]
  - Fatigue [Recovered/Resolved]
  - Alopecia [Not Recovered/Not Resolved]
  - Joint crepitation [Not Recovered/Not Resolved]
  - Pain [Recovered/Resolved]
  - Mobility decreased [Not Recovered/Not Resolved]
  - Back pain [Not Recovered/Not Resolved]
  - Abdominal pain [Not Recovered/Not Resolved]
  - Wrong technique in drug usage process [Not Recovered/Not Resolved]
  - Influenza [Recovered/Resolved]
  - Injection site pain [Not Recovered/Not Resolved]
